FAERS Safety Report 6586343-4 (Version None)
Quarter: 2010Q1

REPORT INFORMATION
  Report Type: 
  Country: None (occurrence: None)
  Receive Date: 20100217
  Receipt Date: 20100211
  Transmission Date: 20100710
  Serious: Yes (Congenital Anomaly)
  Sender: FDA-Public Use
  Company Number: US-GILEAD-2010-0026566

PATIENT
  Sex: Female

DRUGS (3)
  1. TRUVADA [Suspect]
     Indication: HIV INFECTION
     Route: 064
     Dates: start: 20061213
  2. LEXIVA [Concomitant]
     Indication: HIV INFECTION
     Route: 062
     Dates: start: 20061213
  3. NORVIR [Concomitant]
     Indication: HIV INFECTION
     Route: 064
     Dates: start: 20061213

REACTIONS (3)
  - MATERNAL DRUGS AFFECTING FOETUS [None]
  - TRISOMY 21 [None]
  - VENTRICULAR SEPTAL DEFECT [None]
